FAERS Safety Report 23140193 (Version 1)
Quarter: 2023Q4

REPORT INFORMATION
  Report Type: Spontaneous
  Country: US (occurrence: US)
  Receive Date: 20231102
  Receipt Date: 20231102
  Transmission Date: 20240110
  Serious: No
  Sender: FDA-Public Use
  Company Number: US-GILEAD-2023-0649677

PATIENT

DRUGS (1)
  1. RANEXA [Suspect]
     Active Substance: RANOLAZINE
     Indication: Angina pectoris
     Route: 065

REACTIONS (1)
  - Wrong technique in product usage process [Unknown]
